FAERS Safety Report 6927753-2 (Version None)
Quarter: 2010Q3

REPORT INFORMATION
  Report Type: 
  Country: None (occurrence: None)
  Receive Date: 20100817
  Receipt Date: 20100716
  Transmission Date: 20110219
  Serious: No
  Sender: FDA-Public Use
  Company Number: US-BAYER-201018471BCC

PATIENT
  Age: 60 Year
  Sex: Female
  Weight: 91 kg

DRUGS (17)
  1. ALEVE [Suspect]
     Indication: PRODUCT USED FOR UNKNOWN INDICATION
     Route: 048
  2. ALEVE (CAPLET) [Suspect]
     Indication: PRODUCT USED FOR UNKNOWN INDICATION
     Route: 048
  3. ALEVE [Suspect]
     Indication: BACK PAIN
     Dosage: TOTAL DAILY DOSE: 220 MG  UNIT DOSE: 220 MG
     Route: 048
     Dates: start: 20100715
  4. CALCIUM [Concomitant]
     Route: 065
  5. LIALDA [Concomitant]
     Route: 065
  6. RANITIDINE [Concomitant]
     Route: 065
  7. COZAAR [Concomitant]
     Route: 065
  8. AZATHIOPRINE [Concomitant]
     Route: 065
  9. ACIPHEX [Concomitant]
     Route: 065
  10. FUROSEMIDE [Concomitant]
     Route: 065
  11. POTASSIUM [Concomitant]
     Route: 065
  12. SYNTHROID [Concomitant]
     Route: 065
  13. FOLIC ACID [Concomitant]
     Route: 065
  14. CLARITIN [Concomitant]
     Route: 065
  15. VITAMIN E [Concomitant]
     Route: 065
  16. CHLORDIAZEPOXIDE-CLIDINIUM [Concomitant]
  17. ACETAMINOPHEN [Concomitant]
     Route: 065

REACTIONS (3)
  - ABDOMINAL PAIN UPPER [None]
  - ORAL DISCOMFORT [None]
  - THROAT IRRITATION [None]
